FAERS Safety Report 12159424 (Version 1)
Quarter: 2016Q1

REPORT INFORMATION
  Report Type: Spontaneous
  Country: US (occurrence: None)
  Receive Date: 20160307
  Receipt Date: 20160307
  Transmission Date: 20160526
  Serious: No
  Sender: FDA-Public Use
  Company Number: None

PATIENT
  Age: 16 Year
  Sex: Male

DRUGS (1)
  1. HUMIRA [Suspect]
     Active Substance: ADALIMUMAB
     Dosage: 40MG Q14DAYS
     Route: 058
     Dates: start: 20150630

REACTIONS (2)
  - Suicidal ideation [None]
  - Abdominal pain upper [None]

NARRATIVE: CASE EVENT DATE: 20160229
